FAERS Safety Report 6667634-5 (Version None)
Quarter: 2010Q2

REPORT INFORMATION
  Report Type: 
  Country: None (occurrence: None)
  Receive Date: 20100405
  Receipt Date: 20100326
  Transmission Date: 20101027
  Serious: Yes (Hospitalization, Disabling)
  Sender: FDA-Public Use
  Company Number: A0850055A

PATIENT
  Age: 36 Year
  Sex: Female

DRUGS (15)
  1. WELLBUTRIN XL [Suspect]
     Indication: DRUG USE FOR UNKNOWN INDICATION
     Dosage: 300MG PER DAY
     Route: 048
     Dates: start: 20081106, end: 20100101
  2. WELLBUTRIN [Suspect]
     Indication: DRUG USE FOR UNKNOWN INDICATION
     Dosage: 300MG PER DAY
     Route: 048
     Dates: start: 20081106, end: 20100101
  3. CLOZARIL [Suspect]
     Indication: SCHIZOAFFECTIVE DISORDER
     Dosage: 200MG TWICE PER DAY
     Route: 048
     Dates: start: 20090601, end: 20100101
  4. DEPO-PROVERA [Concomitant]
     Dosage: 150MG AS DIRECTED
     Route: 030
     Dates: start: 20060721
  5. CHANTIX [Concomitant]
     Dates: start: 20090127, end: 20091011
  6. ATIVAN [Concomitant]
  7. OXYBUTYNIN [Concomitant]
     Dates: start: 20100201
  8. BENADRYL [Concomitant]
     Dates: start: 20100106
  9. RISPERDAL [Concomitant]
     Dates: start: 20091105
  10. LAMOTRIGINE [Concomitant]
  11. ZONEGRAN [Concomitant]
  12. DESMOPRESSIN ACETATE [Concomitant]
  13. EFFEXOR [Concomitant]
  14. LASIX [Concomitant]
  15. IRON SULFATETHIAMIN COMPOUND TAB [Concomitant]

REACTIONS (13)
  - BRAIN INJURY [None]
  - DYSKINESIA [None]
  - DYSPHONIA [None]
  - EUPHORIC MOOD [None]
  - EXCESSIVE EYE BLINKING [None]
  - FALL [None]
  - FEAR [None]
  - GRAND MAL CONVULSION [None]
  - HYPONATRAEMIA [None]
  - LOGORRHOEA [None]
  - POSTICTAL STATE [None]
  - TOBACCO USER [None]
  - URINARY TRACT INFECTION [None]
